FAERS Safety Report 14738767 (Version 1)
Quarter: 2018Q2

REPORT INFORMATION
  Report Type: Report from Study
  Country: CN (occurrence: CN)
  Receive Date: 20180409
  Receipt Date: 20180409
  Transmission Date: 20180711
  Serious: Yes (Death)
  Sender: FDA-Public Use
  Company Number: CN-MYLANLABS-2018M1022318

PATIENT

DRUGS (4)
  1. FLUOROURACIL. [Suspect]
     Active Substance: FLUOROURACIL
     Indication: COLON CANCER
     Dosage: BOLUS INJECTION OF FLUOROURACIL 400 MG/M2 ON DAY 1
     Route: 050
  2. CALCIUM FOLINATE [Suspect]
     Active Substance: LEUCOVORIN CALCIUM
     Indication: COLON CANCER
     Dosage: 400 MG/M2 INFUSED FOR OVER 2 H IN COORDINATION WITH IRINOTECAN INFUSION TIME ON DAY 1
     Route: 041
  3. FLUOROURACIL. [Suspect]
     Active Substance: FLUOROURACIL
     Indication: COLON CANCER
     Dosage: CONTINUOUS INTRAVENOUS INFUSION OF FLUOROURACIL 1200 MG/M2 TWICE DAILY (TOTAL DOSE OF 2400 MG/M2 ...
     Route: 041
  4. IRINOTECAN [Suspect]
     Active Substance: IRINOTECAN
     Indication: COLON CANCER
     Dosage: 180 MG/M2 INFUSED FOR MORE THAN 30-90 MIN ON DAY 1
     Route: 041

REACTIONS (1)
  - Disseminated intravascular coagulation [Fatal]
